FAERS Safety Report 5409978-0 (Version None)
Quarter: 2007Q3

REPORT INFORMATION
  Report Type: 
  Country: None (occurrence: None)
  Receive Date: 20070809
  Receipt Date: 20070801
  Transmission Date: 20080115
  Serious: Yes (Hospitalization)
  Sender: FDA-Public Use
  Company Number: US-AMGEN-STX233403

PATIENT
  Sex: Female
  Weight: 89.4 kg

DRUGS (7)
  1. ENBREL [Suspect]
     Indication: RHEUMATOID ARTHRITIS
     Route: 058
     Dates: start: 20030726, end: 20050516
  2. ENBREL [Suspect]
     Route: 058
     Dates: start: 20050901
  3. PLAQUENIL [Concomitant]
     Dates: start: 20070521
  4. PREDNISONE [Concomitant]
     Dates: start: 20060926
  5. CYMBALTA [Concomitant]
     Dates: start: 20050201
  6. LYRICA [Concomitant]
     Dates: start: 20060530
  7. TYLENOL (CAPLET) [Concomitant]

REACTIONS (12)
  - ARTHRALGIA [None]
  - INJECTION SITE PAIN [None]
  - JOINT EFFUSION [None]
  - JOINT SWELLING [None]
  - KNEE ARTHROPLASTY [None]
  - LOOSE BODY IN JOINT [None]
  - MENISCUS LESION [None]
  - OSTEOARTHRITIS [None]
  - POST PROCEDURAL HAEMATOMA [None]
  - PROCEDURAL PAIN [None]
  - RHEUMATOID ARTHRITIS [None]
  - WOUND DRAINAGE [None]
